FAERS Safety Report 15480514 (Version 1)
Quarter: 2018Q4

REPORT INFORMATION
  Report Type: Spontaneous
  Country: IT (occurrence: IT)
  Receive Date: 20181010
  Receipt Date: 20181010
  Transmission Date: 20190205
  Serious: Yes (Other)
  Sender: FDA-Public Use
  Company Number: IT-AMGEN-ITASP2018139525

PATIENT
  Age: 74 Year
  Sex: Female

DRUGS (4)
  1. FILGRASTIM [Suspect]
     Active Substance: FILGRASTIM
     Indication: NEUTROPENIA
     Dosage: UNK
     Route: 065
  2. FILGRASTIM [Suspect]
     Active Substance: FILGRASTIM
     Indication: METASTATIC LYMPHOMA
  3. GEMCITABINE [Suspect]
     Active Substance: GEMCITABINE\GEMCITABINE HYDROCHLORIDE
     Indication: METASTATIC LYMPHOMA
     Dosage: 1100 MG/M2, UNK
     Route: 065
  4. CARBOPLATIN. [Suspect]
     Active Substance: CARBOPLATIN
     Indication: METASTATIC LYMPHOMA
     Dosage: 250 MG/M2, UNK
     Route: 065

REACTIONS (8)
  - Ill-defined disorder [Not Recovered/Not Resolved]
  - Off label use [Unknown]
  - Platelet count decreased [Unknown]
  - Asthenia [Unknown]
  - Neutropenia [Unknown]
  - Respiratory disorder [Unknown]
  - Vertigo [Not Recovered/Not Resolved]
  - White blood cell count increased [Unknown]

NARRATIVE: CASE EVENT DATE: 20180911
